FAERS Safety Report 23651035 (Version 1)
Quarter: 2024Q1

REPORT INFORMATION
  Report Type: Spontaneous
  Country: DE (occurrence: DE)
  Receive Date: 20240320
  Receipt Date: 20240320
  Transmission Date: 20240410
  Serious: Yes (Other)
  Sender: FDA-Public Use
  Company Number: DE-ABBVIE-5680637

PATIENT
  Age: 68 Year
  Sex: Female

DRUGS (3)
  1. CARBIDOPA\LEVODOPA [Suspect]
     Active Substance: CARBIDOPA\LEVODOPA
     Indication: Parkinson^s disease
     Route: 050
     Dates: start: 2020, end: 2022
  2. CARBIDOPA\LEVODOPA [Suspect]
     Active Substance: CARBIDOPA\LEVODOPA
  3. Levodopa Carbidopa Entacapon [Concomitant]
     Indication: Parkinson^s disease
     Dosage: 1.6 ML/H DURING THE DAY, 1.3 ML/H AT NIGHT; MD 2.5ML, ED 0.4ML
     Dates: start: 2022

REACTIONS (5)
  - Intestinal transit time abnormal [Unknown]
  - Sepsis [Unknown]
  - Tremor [Recovering/Resolving]
  - Ileus [Unknown]
  - Chills [Recovering/Resolving]
